FAERS Safety Report 19878401 (Version 1)
Quarter: 2021Q3

REPORT INFORMATION
  Report Type: Spontaneous
  Country: US (occurrence: US)
  Receive Date: 20210924
  Receipt Date: 20210924
  Transmission Date: 20211014
  Serious: Yes (Other)
  Sender: FDA-Public Use
  Company Number: None

PATIENT
  Age: 66 Year
  Sex: Female
  Weight: 108 kg

DRUGS (1)
  1. BARICITINIB. [Suspect]
     Active Substance: BARICITINIB
     Indication: COVID-19
     Route: 048
     Dates: start: 20210908, end: 20210917

REACTIONS (9)
  - Pneumonia bacterial [None]
  - Respiratory disorder [None]
  - Sputum culture positive [None]
  - Bacterial infection [None]
  - Klebsiella test positive [None]
  - Streptococcus test positive [None]
  - Culture positive [None]
  - Condition aggravated [None]
  - Pneumothorax [None]

NARRATIVE: CASE EVENT DATE: 20210917
